FAERS Safety Report 8523048-4 (Version None)
Quarter: 2012Q3

REPORT INFORMATION
  Report Type: 
  Country: None (occurrence: None)
  Receive Date: 20120720
  Receipt Date: 20120619
  Transmission Date: 20120928
  Serious: Yes (Other)
  Sender: FDA-Public Use
  Company Number: BR-ROCHE-1063028

PATIENT
  Age: 7 Year
  Sex: Male

DRUGS (6)
  1. PREDNISONE [Suspect]
     Indication: JUVENILE ARTHRITIS
  2. LEFLUNOMIDE [Interacting]
     Indication: JUVENILE ARTHRITIS
     Dates: start: 20111201
  3. METHOTREXATE [Suspect]
     Indication: JUVENILE ARTHRITIS
     Dates: start: 20111201
  4. ACTEMRA [Interacting]
     Indication: JUVENILE ARTHRITIS
     Dates: start: 20111201
  5. CALCIUM CARBONATE [Concomitant]
  6. VITAMIN D [Concomitant]

REACTIONS (4)
  - DRUG-INDUCED LIVER INJURY [None]
  - ARTHRITIS [None]
  - DRUG INTERACTION [None]
  - TRANSAMINASES INCREASED [None]
